FAERS Safety Report 7058180-8 (Version None)
Quarter: 2010Q4

REPORT INFORMATION
  Report Type: 
  Country: None (occurrence: None)
  Receive Date: 20101022
  Receipt Date: 20101008
  Transmission Date: 20110411
  Serious: Yes (Other)
  Sender: FDA-Public Use
  Company Number: JP-PFIZER INC-2010122523

PATIENT
  Age: 80 Year
  Sex: Male

DRUGS (6)
  1. LYRICA [Suspect]
     Indication: POST HERPETIC NEURALGIA
     Dosage: 75 MG, 3X/DAY
     Route: 048
     Dates: start: 20100830, end: 20100924
  2. ARICEPT [Suspect]
     Indication: DEMENTIA
     Dosage: 3 MG, 1X/DAY
     Route: 048
     Dates: start: 20100913, end: 20100919
  3. RISPERDAL [Concomitant]
     Indication: PORIOMANIA
     Dosage: 0.5 MG DAILY
     Route: 048
     Dates: start: 20100921, end: 20100924
  4. RISPERDAL [Concomitant]
     Indication: DELIRIUM
  5. CODEINE [Concomitant]
     Dosage: UNK
     Dates: end: 20100921
  6. LOXOPROFEN SODIUM [Concomitant]
     Indication: POST HERPETIC NEURALGIA
     Dosage: 60 MG, 3X/DAY
     Route: 048
     Dates: start: 20100920, end: 20100921

REACTIONS (7)
  - DELIRIUM [None]
  - DEPRESSED LEVEL OF CONSCIOUSNESS [None]
  - DYSPHAGIA [None]
  - HEPATIC FUNCTION ABNORMAL [None]
  - HYPOAESTHESIA [None]
  - PORIOMANIA [None]
  - RHABDOMYOLYSIS [None]
